FAERS Safety Report 9846743 (Version 1)
Quarter: 2014Q1

REPORT INFORMATION
  Report Type: Spontaneous
  Country: US (occurrence: US)
  Receive Date: 20140127
  Receipt Date: 20140127
  Transmission Date: 20141002
  Serious: No
  Sender: FDA-Public Use
  Company Number: US-GILEAD-2012-0050771

PATIENT
  Age: 35 Year
  Sex: Male
  Weight: 61.22 kg

DRUGS (2)
  1. ATRIPLA [Suspect]
     Indication: HIV INFECTION
  2. COMPLERA [Suspect]
     Indication: HIV INFECTION

REACTIONS (2)
  - Cough [Unknown]
  - Nervous system disorder [Unknown]
